FAERS Safety Report 6645732-X (Version None)
Quarter: 2010Q1

REPORT INFORMATION
  Report Type: 
  Country: None (occurrence: None)
  Receive Date: 20100323
  Receipt Date: 20100315
  Transmission Date: 20100710
  Serious: Yes (Other)
  Sender: FDA-Public Use
  Company Number: FR-ASTRAZENECA-2010SE11958

PATIENT
  Age: 74 Year
  Sex: Female

DRUGS (2)
  1. FOSCAVIR [Suspect]
     Indication: CYTOMEGALOVIRUS COLITIS
     Route: 042
     Dates: start: 20100127, end: 20100210
  2. FOSCAVIR [Suspect]
     Route: 042
     Dates: start: 20100211

REACTIONS (2)
  - CONDITION AGGRAVATED [None]
  - HYPOCALCAEMIA [None]
